FAERS Safety Report 9437030 (Version 1)
Quarter: 2013Q3

REPORT INFORMATION
  Report Type: Spontaneous
  Country: US (occurrence: US)
  Receive Date: 20130802
  Receipt Date: 20130802
  Transmission Date: 20140515
  Serious: Yes (Other)
  Sender: FDA-Public Use
  Company Number: US-PFIZER INC-2013224249

PATIENT
  Age: 37 Year
  Sex: Female

DRUGS (5)
  1. LYRICA [Suspect]
     Indication: FIBROMYALGIA
     Dosage: 225 MG, 2X/DAY
     Route: 048
  2. SEROQUEL [Concomitant]
     Dosage: UNK
  3. TOPAMAX [Concomitant]
     Dosage: UNK
  4. HYDROCODONE [Concomitant]
     Dosage: UNK
  5. RISPERIDONE [Concomitant]
     Dosage: UNK

REACTIONS (7)
  - Cerebral palsy [Unknown]
  - Schizoaffective disorder [Unknown]
  - Impaired work ability [Unknown]
  - Spinal disorder [Unknown]
  - Back disorder [Unknown]
  - Movement disorder [Unknown]
  - Muscular weakness [Unknown]
